FAERS Safety Report 24365385 (Version 3)
Quarter: 2025Q1

REPORT INFORMATION
  Report Type: Spontaneous
  Country: CU (occurrence: CU)
  Receive Date: 20240926
  Receipt Date: 20250228
  Transmission Date: 20250409
  Serious: Yes (Death, Other)
  Sender: ROCHE
  Company Number: CU-ROCHE-10000090306

PATIENT
  Age: 23 Year
  Sex: Female

DRUGS (13)
  1. RITUXIMAB [Suspect]
     Active Substance: RITUXIMAB
     Indication: Diffuse large B-cell lymphoma
     Route: 065
  2. POLATUZUMAB VEDOTIN [Suspect]
     Active Substance: POLATUZUMAB VEDOTIN
     Indication: Diffuse large B-cell lymphoma
     Route: 042
  3. CYCLOPHOSPHAMIDE [Suspect]
     Active Substance: CYCLOPHOSPHAMIDE
     Indication: Diffuse large B-cell lymphoma
     Route: 065
  4. DOXORUBICIN [Suspect]
     Active Substance: DOXORUBICIN
     Indication: Diffuse large B-cell lymphoma
     Route: 065
  5. VINCRISTINE [Suspect]
     Active Substance: VINCRISTINE
     Indication: Diffuse large B-cell lymphoma
     Route: 065
  6. PREDNISONE [Suspect]
     Active Substance: PREDNISONE
     Indication: Diffuse large B-cell lymphoma
     Route: 065
  7. ETOPOSIDE [Suspect]
     Active Substance: ETOPOSIDE
     Indication: Diffuse large B-cell lymphoma
     Route: 065
  8. DEXAMETHASONE [Concomitant]
     Active Substance: DEXAMETHASONE
  9. CYTARABINE [Concomitant]
     Active Substance: CYTARABINE
  10. CYTARABINE [Concomitant]
     Active Substance: CYTARABINE
  11. IFOSFAMIDE [Concomitant]
     Active Substance: IFOSFAMIDE
  12. CARBOPLATIN [Concomitant]
     Active Substance: CARBOPLATIN
  13. GEMCITABINE [Concomitant]
     Active Substance: GEMCITABINE

REACTIONS (4)
  - Disease progression [Fatal]
  - Leukopenia [Recovering/Resolving]
  - Anaemia [Recovering/Resolving]
  - Pancytopenia [Unknown]
